FAERS Safety Report 15857240 (Version 1)
Quarter: 2019Q1

REPORT INFORMATION
  Report Type: Spontaneous
  Country: US (occurrence: US)
  Receive Date: 20190123
  Receipt Date: 20190123
  Transmission Date: 20190417
  Serious: Yes (Other)
  Sender: FDA-Public Use
  Company Number: US-AMREGENT-20190070

PATIENT
  Age: 52 Year
  Sex: Female

DRUGS (2)
  1. B 12 INJECTION [Suspect]
     Active Substance: CYANOCOBALAMIN
     Dosage: UNKNOWN
     Route: 051
  2. INJECTAFER [Suspect]
     Active Substance: FERRIC CARBOXYMALTOSE
     Dosage: 750 MG
     Route: 042
     Dates: start: 20181207

REACTIONS (7)
  - Sleep disorder [Unknown]
  - Supraventricular extrasystoles [Unknown]
  - Palpitations [Unknown]
  - Ventricular extrasystoles [Unknown]
  - Product use in unapproved indication [Unknown]
  - Blood phosphorus decreased [Unknown]
  - Fatigue [Unknown]

NARRATIVE: CASE EVENT DATE: 201812
